FAERS Safety Report 5221099-9 (Version None)
Quarter: 2007Q1

REPORT INFORMATION
  Report Type: 
  Country: None (occurrence: None)
  Receive Date: 20070124
  Receipt Date: 20070115
  Transmission Date: 20070707
  Serious: No
  Sender: FDA-Public Use
  Company Number: TPA2006A02107

PATIENT
  Age: 59 Year
  Sex: Male

DRUGS (1)
  1. ACTOS [Suspect]
     Dosage: 45 MG, 1 IN D, PER ORAL

REACTIONS (1)
  - PHARMACEUTICAL PRODUCT COMPLAINT [None]
